FAERS Safety Report 19466480 (Version 1)
Quarter: 2021Q2

REPORT INFORMATION
  Report Type: Spontaneous
  Country: PL (occurrence: PL)
  Receive Date: 20210628
  Receipt Date: 20210628
  Transmission Date: 20210717
  Serious: Yes (Death, Hospitalization, Other)
  Sender: FDA-Public Use
  Company Number: PL-AUROBINDO-AUR-APL-2021-026739

PATIENT
  Age: 64 Year
  Sex: Male
  Weight: 84 kg

DRUGS (1)
  1. PARACETAMOL [Suspect]
     Active Substance: ACETAMINOPHEN
     Indication: BODY TEMPERATURE INCREASED
     Dosage: 500 MILLIGRAM, EVERY FOUR HOUR
     Route: 065
     Dates: start: 20210403, end: 20210410

REACTIONS (6)
  - Pyrexia [Fatal]
  - Thrombosis [Fatal]
  - COVID-19 pneumonia [Fatal]
  - Vomiting [Fatal]
  - Diarrhoea [Fatal]
  - Asthenia [Fatal]

NARRATIVE: CASE EVENT DATE: 20210403
